FAERS Safety Report 16354996 (Version 1)
Quarter: 2019Q2

REPORT INFORMATION
  Report Type: Spontaneous
  Country: US (occurrence: US)
  Receive Date: 20190524
  Receipt Date: 20190524
  Transmission Date: 20190711
  Serious: No
  Sender: FDA-Public Use
  Company Number: US-TAKEDA-2019TUS030838

PATIENT
  Age: 21 Year
  Sex: Male

DRUGS (1)
  1. ENTYVIO [Suspect]
     Active Substance: VEDOLIZUMAB
     Indication: COLITIS ULCERATIVE
     Dosage: UNK, Q4WEEKS
     Route: 065
     Dates: start: 201712

REACTIONS (4)
  - Yellow skin [Unknown]
  - Off label use [Unknown]
  - Product dose omission [Unknown]
  - Hepatic enzyme increased [Unknown]
